FAERS Safety Report 14184547 (Version 10)
Quarter: 2019Q1

REPORT INFORMATION
  Report Type: Spontaneous
  Country: FR (occurrence: FR)
  Receive Date: 20171113
  Receipt Date: 20190222
  Transmission Date: 20190417
  Serious: Yes (Death, Other)
  Sender: FDA-Public Use
  Company Number: FR-PFIZER INC-2017485104

PATIENT
  Age: 80 Year
  Sex: Male

DRUGS (29)
  1. VFEND [Interacting]
     Active Substance: VORICONAZOLE
     Indication: BRONCHOPULMONARY ASPERGILLOSIS
     Dosage: 200 MG, 1X/DAY (DAY 9 MORNING)
     Route: 048
     Dates: start: 20171025, end: 20171025
  2. HYDROCORTISONE SODIUM SUCCINATE [Interacting]
     Active Substance: HYDROCORTISONE SODIUM SUCCINATE
     Indication: ACUTE MYELOID LEUKAEMIA
     Dosage: 100 MG, 1X/DAY (OCCASIONALLY)
     Route: 042
     Dates: start: 20171020, end: 20171027
  3. HYDREA [Interacting]
     Active Substance: HYDROXYUREA
     Indication: ACUTE MYELOID LEUKAEMIA
     Dosage: 500 MG, 2X/DAY
     Route: 048
     Dates: start: 20171013, end: 20171021
  4. ZYLORIC [Interacting]
     Active Substance: ALLOPURINOL
     Indication: TUMOUR LYSIS SYNDROME
     Dosage: 100 MG, 2X/DAY
     Route: 048
     Dates: start: 20171015, end: 20171026
  5. ICLUSIG [Interacting]
     Active Substance: PONATINIB
     Indication: ACUTE MYELOID LEUKAEMIA
     Dosage: 45 MG, 1X/DAY (D1 TO D9, AT NOON)
     Route: 048
     Dates: start: 20171017, end: 20171025
  6. ATARAX [Concomitant]
     Active Substance: HYDROXYZINE HYDROCHLORIDE
     Dosage: 12.5 MG, 1X/DAY
     Dates: start: 201710, end: 20171025
  7. VFEND [Suspect]
     Active Substance: VORICONAZOLE
     Indication: BRONCHOPULMONARY ASPERGILLOSIS
     Dosage: 400 MG, 1X/DAY (DAY3 NIGHT)
     Route: 042
     Dates: start: 20171019, end: 20171019
  8. LASILIX /00032601/ [Interacting]
     Active Substance: FUROSEMIDE
     Dosage: 20 MG, 1X/DAY
     Route: 048
     Dates: start: 20171022, end: 20171025
  9. VFEND [Interacting]
     Active Substance: VORICONAZOLE
     Dosage: 200 MG, 1X/DAY (D8 NIGHT)
     Route: 042
     Dates: start: 20171024, end: 20171024
  10. LASILIX /00032601/ [Interacting]
     Active Substance: FUROSEMIDE
     Indication: HYPERTENSION
     Dosage: 40 MG, 1X/DAY
     Route: 048
     Dates: start: 20171019, end: 20171021
  11. FASTURTEC [Concomitant]
     Active Substance: RASBURICASE
     Dosage: 7.5 MG, SINGLE
     Route: 042
     Dates: start: 20171014, end: 20171014
  12. ZITHROMAX [Interacting]
     Active Substance: AZITHROMYCIN DIHYDRATE
     Indication: RESPIRATORY TRACT INFECTION
  13. CEFTRIAXONE SODIUM. [Interacting]
     Active Substance: CEFTRIAXONE SODIUM
     Indication: URINARY TRACT INFECTION
     Dosage: 1 G, 2X/DAY
     Route: 042
     Dates: start: 20171016, end: 20171025
  14. BISOCE [Interacting]
     Active Substance: BISOPROLOL
     Indication: TACHYCARDIA
     Dosage: 5 MG, 1X/DAY
     Route: 048
     Dates: start: 20171015, end: 20171029
  15. RENAGEL [Concomitant]
     Active Substance: SEVELAMER HYDROCHLORIDE
     Dosage: 800 MG, 2X/DAY
     Dates: start: 201710, end: 201710
  16. ZITHROMAX [Interacting]
     Active Substance: AZITHROMYCIN DIHYDRATE
     Indication: BRONCHOPULMONARY ASPERGILLOSIS
     Dosage: 250 MG, 1X/DAY
     Route: 048
     Dates: start: 20171018, end: 20171025
  17. ZYLORIC [Interacting]
     Active Substance: ALLOPURINOL
     Dosage: 100 MG, DAILY
     Route: 048
     Dates: start: 20171029, end: 20171029
  18. SPASFON /00765801/ [Concomitant]
     Active Substance: PHLOROGLUCINOL\1,3,5-TRIMETHOXYBENZENE
     Dosage: 80 MG, AS NEEDED
     Dates: start: 201710, end: 201710
  19. TOPALGIC [Concomitant]
     Dosage: 50 MG, AS NEEDED
     Dates: start: 201710, end: 20171025
  20. STILNOX [Concomitant]
     Active Substance: ZOLPIDEM TARTRATE
     Dosage: 10 MG, AS NEEDED
     Dates: start: 201710, end: 201710
  21. VFEND [Interacting]
     Active Substance: VORICONAZOLE
     Dosage: 400 MG, 1X/DAY (D8 MORNING)
     Route: 042
     Dates: start: 20171024, end: 20171024
  22. ZITHROMAX [Interacting]
     Active Substance: AZITHROMYCIN DIHYDRATE
     Indication: ACUTE MYELOID LEUKAEMIA
     Dosage: 500 MG, SINGLE (D2)
     Route: 048
     Dates: start: 20171018, end: 20171018
  23. TRIMEBUTINE ARROW [Interacting]
     Active Substance: TRIMEBUTINE MALEATE
     Indication: GASTROINTESTINAL DISORDER
     Dosage: 100 MG, 2X/DAY
     Route: 048
     Dates: start: 20171022, end: 20171025
  24. ZYLORIC [Interacting]
     Active Substance: ALLOPURINOL
     Dosage: 100 MG, DAILY
     Route: 048
     Dates: start: 20171027, end: 20171027
  25. ZOPHREN /00955301/ [Concomitant]
     Active Substance: ONDANSETRON
     Dosage: UNK
     Dates: start: 20171025, end: 20171025
  26. CORTANCYL [Concomitant]
     Active Substance: PREDNISONE
     Dosage: 40 MG, DAILY (OCCASIONALLY)
     Dates: start: 201710, end: 201710
  27. VFEND [Interacting]
     Active Substance: VORICONAZOLE
     Indication: RESPIRATORY TRACT INFECTION
     Dosage: 400 MG, 2X/DAY (DAY 4 TO D7 MORNING-NIGHT)
     Route: 042
     Dates: start: 20171020, end: 20171023
  28. POLARAMINE [Interacting]
     Active Substance: DEXCHLORPHENIRAMINE MALEATE
     Indication: ACUTE MYELOID LEUKAEMIA
     Dosage: 5 MG, 1X/DAY
     Route: 042
     Dates: start: 20171020, end: 20171027
  29. MOVICOL [Concomitant]
     Active Substance: POLYETHYLENE GLYCOL 3350\POTASSIUM CHLORIDE\SODIUM BICARBONATE\SODIUM CHLORIDE
     Dosage: 2 DF, DAILY
     Dates: start: 20171015, end: 20171029

REACTIONS (5)
  - Hepatic failure [Fatal]
  - Hepatocellular injury [Fatal]
  - Drug interaction [Fatal]
  - Drug level increased [Fatal]
  - Hepatitis [Fatal]

NARRATIVE: CASE EVENT DATE: 20171022
